FAERS Safety Report 4665616-6 (Version None)
Quarter: 2005Q2

REPORT INFORMATION
  Report Type: 
  Country: None (occurrence: None)
  Receive Date: 20050519
  Receipt Date: 20040608
  Transmission Date: 20051028
  Serious: No
  Sender: FDA-Public Use
  Company Number: US-BRISTOL-MYERS SQUIBB COMPANY-12608337

PATIENT
  Age: 8 Month
  Sex: Male

DRUGS (1)
  1. MYCOLOG-II [Suspect]
     Indication: DERMATITIS DIAPER
     Route: 061
     Dates: start: 20040103, end: 20040112

REACTIONS (4)
  - APPLICATION SITE IRRITATION [None]
  - RASH PAPULAR [None]
  - RASH PRURITIC [None]
  - SKIN DISCOLOURATION [None]
